FAERS Safety Report 8488791-4 (Version None)
Quarter: 2012Q2

REPORT INFORMATION
  Report Type: 
  Country: None (occurrence: None)
  Receive Date: 20120626
  Receipt Date: 20120614
  Transmission Date: 20120825
  Serious: Yes (Death, Hospitalization, Other)
  Sender: FDA-Public Use
  Company Number: 2011SP01285

PATIENT
  Age: 67 Year
  Sex: Male
  Weight: 80.7403 kg

DRUGS (11)
  1. ZOLOFT [Concomitant]
  2. METFORMIN HCL [Concomitant]
  3. FISH OIL [Concomitant]
  4. CHOLECALCIFEROL [Concomitant]
  5. DIGOXIN [Concomitant]
  6. AMLODIPINE [Concomitant]
  7. HEPARIN [Suspect]
     Dates: start: 20111201
  8. SYNTHROID [Concomitant]
  9. NEURONTIN [Concomitant]
  10. ZANTAC [Concomitant]
  11. PERCOCET [Concomitant]

REACTIONS (13)
  - CONFUSIONAL STATE [None]
  - TRANSIENT ISCHAEMIC ATTACK [None]
  - HYPONATRAEMIA [None]
  - GANGRENE [None]
  - HEPARIN-INDUCED THROMBOCYTOPENIA [None]
  - RESPIRATORY DISTRESS [None]
  - HAEMATURIA [None]
  - PERIPHERAL ARTERIAL OCCLUSIVE DISEASE [None]
  - PERIPHERAL ISCHAEMIA [None]
  - FAILURE TO THRIVE [None]
  - PNEUMONIA [None]
  - INSOMNIA [None]
  - ANAEMIA [None]
